FAERS Safety Report 18069325 (Version 1)
Quarter: 2020Q3

REPORT INFORMATION
  Report Type: Report from Study
  Country: IN (occurrence: IN)
  Receive Date: 20200725
  Receipt Date: 20200725
  Transmission Date: 20201103
  Serious: Yes (Hospitalization)
  Sender: FDA-Public Use
  Company Number: NVSC2020IN208899

PATIENT
  Age: 62 Year
  Sex: Female

DRUGS (1)
  1. VYMADA [Suspect]
     Active Substance: SACUBITRIL\VALSARTAN
     Indication: CARDIAC FAILURE
     Dosage: 150 MG, BID (100 MG BD AND 100MG 1/2 BID)
     Route: 048
     Dates: start: 20190411

REACTIONS (2)
  - Wrong technique in product usage process [Unknown]
  - Chest pain [Unknown]

NARRATIVE: CASE EVENT DATE: 20190411
